FAERS Safety Report 8328747-5 (Version None)
Quarter: 2012Q2

REPORT INFORMATION
  Report Type: 
  Country: None (occurrence: None)
  Receive Date: 20120502
  Receipt Date: 20120430
  Transmission Date: 20120825
  Serious: Yes (Death, Life-Threatening, Hospitalization)
  Sender: FDA-Public Use
  Company Number: US-SANOFI-AVENTIS-2012SA026276

PATIENT
  Sex: Female

DRUGS (14)
  1. DOCETAXEL [Suspect]
     Route: 065
     Dates: start: 20111221
  2. HYDROCHLOROTHIAZIDE [Concomitant]
  3. LEVOTHYROXINE SODIUM [Concomitant]
  4. DOXORUBICIN HCL [Suspect]
     Indication: BREAST CANCER
     Route: 065
     Dates: start: 20111201
  5. METAXALONE [Concomitant]
  6. CYCLOPHOSPHAMIDE [Suspect]
     Route: 065
     Dates: start: 20111221
  7. GABAPENTIN [Concomitant]
  8. ACETAMINOPHEN [Concomitant]
  9. FLUOXETINE [Concomitant]
  10. DOCETAXEL [Suspect]
     Indication: BREAST CANCER
     Route: 065
     Dates: start: 20111201
  11. DOXORUBICIN HCL [Suspect]
     Route: 065
     Dates: start: 20111221
  12. METFORMIN HCL [Concomitant]
  13. CYCLOPHOSPHAMIDE [Suspect]
     Indication: BREAST CANCER
     Route: 065
     Dates: start: 20111201
  14. HYDROCODONE BITARTRATE [Concomitant]

REACTIONS (3)
  - PNEUMOTHORAX [None]
  - THROMBOSIS [None]
  - PNEUMONITIS [None]
